FAERS Safety Report 5413579-8 (Version None)
Quarter: 2007Q3

REPORT INFORMATION
  Report Type: 
  Country: None (occurrence: None)
  Receive Date: 20070814
  Receipt Date: 20070806
  Transmission Date: 20080115
  Serious: Yes (Other)
  Sender: FDA-Public Use
  Company Number: US-GENENTECH-245807

PATIENT
  Sex: Male

DRUGS (3)
  1. NUTROPIN AQ [Suspect]
     Indication: DRUG USE FOR UNKNOWN INDICATION
     Route: 058
     Dates: start: 20070501
  2. NUTROPIN AQ [Suspect]
     Dosage: 1.2 MG, UNK
     Dates: start: 20070601
  3. NUTROPIN AQ [Suspect]
     Dosage: 0.6 MG, QD

REACTIONS (3)
  - BRAIN OEDEMA [None]
  - INJECTION SITE BRUISING [None]
  - OEDEMA PERIPHERAL [None]
